FAERS Safety Report 20590691 (Version 1)
Quarter: 2022Q1

REPORT INFORMATION
  Report Type: Spontaneous
  Country: CN (occurrence: CN)
  Receive Date: 20220314
  Receipt Date: 20220314
  Transmission Date: 20220423
  Serious: Yes (Hospitalization)
  Sender: FDA-Public Use
  Company Number: CN-ELI_LILLY_AND_COMPANY-CN202203001577

PATIENT

DRUGS (2)
  1. HUMALOG MIX50/50 [Suspect]
     Active Substance: INSULIN LISPRO
     Indication: Diabetes mellitus
     Dosage: 18 INTERNATIONAL UNIT, BID
     Route: 058
     Dates: start: 2019
  2. GLUCOBAY [Concomitant]
     Active Substance: ACARBOSE
     Indication: Product used for unknown indication

REACTIONS (4)
  - Fall [Unknown]
  - Pneumonia [Unknown]
  - Hypoglycaemic seizure [Unknown]
  - Hypoglycaemic coma [Unknown]
